FAERS Safety Report 8027497-2 (Version None)
Quarter: 2012Q1

REPORT INFORMATION
  Report Type: 
  Country: None (occurrence: None)
  Receive Date: 20120106
  Receipt Date: 20111228
  Transmission Date: 20120608
  Serious: Yes (Hospitalization)
  Sender: FDA-Public Use
  Company Number: FR-JNJFOC-20111211831

PATIENT
  Age: 34 Year
  Sex: Female

DRUGS (10)
  1. REMICADE [Suspect]
     Route: 042
     Dates: start: 20110616
  2. REMICADE [Suspect]
     Route: 042
     Dates: start: 20110629
  3. REMICADE [Suspect]
     Indication: CROHN'S DISEASE
     Route: 042
     Dates: start: 20110616
  4. REMICADE [Suspect]
     Route: 042
     Dates: start: 20110629
  5. REMICADE [Suspect]
     Route: 042
     Dates: start: 20110629
  6. REMICADE [Suspect]
     Indication: ARTHRITIS
     Route: 042
     Dates: start: 20110801
  7. REMICADE [Suspect]
     Route: 042
     Dates: start: 20110616
  8. REMICADE [Suspect]
     Route: 042
     Dates: start: 20110801
  9. LEVONORGESTREL + ETHINYL ESTRADIOL [Concomitant]
     Indication: CONTRACEPTION
  10. REMICADE [Suspect]
     Indication: ANKYLOSING SPONDYLITIS
     Route: 042
     Dates: start: 20110801

REACTIONS (3)
  - BENIGN HEPATIC NEOPLASM [None]
  - AUTOIMMUNE HEPATITIS [None]
  - CELL DEATH [None]
